FAERS Safety Report 8558849-X (Version None)
Quarter: 2012Q3

REPORT INFORMATION
  Report Type: 
  Country: None (occurrence: None)
  Receive Date: 20120801
  Receipt Date: 20120723
  Transmission Date: 20120928
  Serious: Yes (Life-Threatening, Hospitalization, Other)
  Sender: FDA-Public Use
  Company Number: US-009507513-1207USA010707

PATIENT

DRUGS (4)
  1. PRINIVIL [Suspect]
  2. CLONIDINE [Suspect]
  3. IBUPROFEN [Suspect]
     Dosage: 400 MG, Q8H
  4. ZOCOR [Suspect]
     Route: 048

REACTIONS (3)
  - GRANULOMATOUS LIVER DISEASE [None]
  - HEPATIC FAILURE [None]
  - RENAL TUBULAR NECROSIS [None]
